FAERS Safety Report 9446192 (Version 1)
Quarter: 2013Q3

REPORT INFORMATION
  Report Type: Spontaneous
  Country: US (occurrence: US)
  Receive Date: 20130807
  Receipt Date: 20130807
  Transmission Date: 20140515
  Serious: No
  Sender: FDA-Public Use
  Company Number: US-AMGEN-USASP2013047044

PATIENT
  Age: 23 Year
  Sex: Female

DRUGS (2)
  1. ENBREL [Suspect]
     Indication: PSORIASIS
     Dosage: 50 MG, QWK
     Route: 065
     Dates: start: 20100222
  2. ENBREL [Suspect]

REACTIONS (3)
  - Local swelling [Not Recovered/Not Resolved]
  - Injury associated with device [Not Recovered/Not Resolved]
  - Erythema [Not Recovered/Not Resolved]
